FAERS Safety Report 15476129 (Version 3)
Quarter: 2018Q4

REPORT INFORMATION
  Report Type: Report from Study
  Country: MX (occurrence: MX)
  Receive Date: 20181009
  Receipt Date: 20181031
  Transmission Date: 20190205
  Serious: Yes (Other)
  Sender: FDA-Public Use
  Company Number: PHHY2018MX116364

PATIENT
  Age: 78 Year
  Sex: Female
  Weight: 60 kg

DRUGS (4)
  1. JANUMET [Concomitant]
     Active Substance: METFORMIN HYDROCHLORIDE\SITAGLIPTIN PHOSPHATE
     Indication: BLOOD CHOLESTEROL
     Dosage: 1 DF, QD (IN THE MORNING)
     Route: 048
     Dates: start: 2016
  2. JANUMET [Concomitant]
     Active Substance: METFORMIN HYDROCHLORIDE\SITAGLIPTIN PHOSPHATE
     Indication: DIABETES MELLITUS
  3. EXFORGE HCT [Suspect]
     Active Substance: AMLODIPINE BESYLATE\HYDROCHLOROTHIAZIDE\VALSARTAN
     Indication: HYPERTENSION
     Dosage: 1 DF, (AMLODIPINE 5MG, HYDROCHLOROTHIAZIDE 12.5MG, VALSARTAN 160MG), QD
     Route: 048
  4. TEMERIT [Concomitant]
     Active Substance: NEBIVOLOL
     Indication: CARDIAC DISORDER
     Dosage: 1 DF, QHS (AT NIGHT) SINCE 4 YEARS APPROXIMATELY
     Route: 048

REACTIONS (7)
  - Diabetes mellitus [Unknown]
  - Limb injury [Unknown]
  - Tendon injury [Unknown]
  - Arthralgia [Unknown]
  - Blood pressure increased [Recovered/Resolved]
  - Tremor [Unknown]
  - Pain [Unknown]

NARRATIVE: CASE EVENT DATE: 2015
